FAERS Safety Report 7121849-0 (Version None)
Quarter: 2010Q4

REPORT INFORMATION
  Report Type: 
  Country: None (occurrence: None)
  Receive Date: 20101124
  Receipt Date: 20101119
  Transmission Date: 20110411
  Serious: Yes (Other)
  Sender: FDA-Public Use
  Company Number: US-TEVA-231858USA

PATIENT
  Sex: Female

DRUGS (3)
  1. CLARAVIS [Suspect]
     Route: 048
     Dates: start: 20090818, end: 20100123
  2. PRENATAL                           /00231801/ [Concomitant]
     Dosage: 10MG-400MCG
     Route: 048
     Dates: start: 20100101
  3. METRONIDAZOLE [Concomitant]
     Indication: VAGINITIS BACTERIAL
     Route: 048
     Dates: start: 20100422, end: 20100429

REACTIONS (1)
  - UNINTENDED PREGNANCY [None]
